FAERS Safety Report 8665464 (Version 4)
Quarter: 2013Q1

REPORT INFORMATION
  Report Type: Spontaneous
  Country: JP (occurrence: JP)
  Receive Date: 20120716
  Receipt Date: 20130219
  Transmission Date: 20140127
  Serious: Yes (Hospitalization, Disabling, Other)
  Sender: FDA-Public Use
  Company Number: JP-MPIJNJ-2012-04773

PATIENT
  Age: 59 None
  Sex: Female
  Weight: 37 kg

DRUGS (14)
  1. VELCADE [Suspect]
     Indication: PLASMA CELL MYELOMA
     Dosage: 1.6 MG, UNK
     Route: 042
     Dates: start: 20110708, end: 20111026
  2. VELCADE [Suspect]
     Dosage: 1.0 UNK, UNK
     Dates: start: 201109
  3. VELCADE [Suspect]
     Dosage: 1.3 MG/M2, UNK
     Dates: start: 201109
  4. DEXAMETHASONE [Concomitant]
     Indication: PLASMA CELL MYELOMA
     Dosage: 20 MG, UNK
     Route: 048
     Dates: start: 20110708
  5. TAKEPRON [Concomitant]
     Indication: PROPHYLAXIS
     Dosage: 15 MG, UNK
     Route: 048
     Dates: start: 20110706
  6. BAKTAR [Concomitant]
     Indication: PROPHYLAXIS
     Dosage: 4 DF, UNK
     Route: 048
     Dates: start: 20110706, end: 201112
  7. MAGLAX [Concomitant]
     Indication: PROPHYLAXIS
     Dosage: 1 G, UNK
     Route: 048
     Dates: start: 20110706
  8. VALTREX [Concomitant]
     Indication: PROPHYLAXIS
     Dosage: 200 MG, UNK
     Route: 048
     Dates: start: 20110717, end: 201112
  9. ITRIZOLE [Concomitant]
     Indication: PROPHYLAXIS
     Dosage: 20 ML, UNK
     Route: 048
     Dates: start: 20110717, end: 201112
  10. SLOW-K [Concomitant]
     Indication: HYPOKALAEMIA
     Dosage: UNK
     Route: 048
     Dates: start: 201108, end: 201110
  11. TANNALBIN [Concomitant]
     Indication: DIARRHOEA
     Dosage: 1 G, UNK
     Route: 048
     Dates: start: 201108, end: 201110
  12. MIYA-BM [Concomitant]
     Indication: DIARRHOEA
     Dosage: 3 DF, UNK
     Route: 048
     Dates: start: 201108, end: 201110
  13. SOLU-CORTEF [Concomitant]
     Indication: PLASMA CELL MYELOMA
     Dosage: 100 MG, UNK
     Route: 042
     Dates: start: 20110708, end: 20111026
  14. GOSHAJINKIGAN [Concomitant]
     Indication: PRODUCT USED FOR UNKNOWN INDICATION

REACTIONS (6)
  - Quadriplegia [Not Recovered/Not Resolved]
  - Neuropathy peripheral [Recovered/Resolved]
  - Diarrhoea [Recovered/Resolved]
  - Pneumonia aspiration [Recovered/Resolved]
  - Pneumonia [Recovering/Resolving]
  - Hypokalaemia [Recovered/Resolved]
